FAERS Safety Report 21723501 (Version 1)
Quarter: 2022Q4

REPORT INFORMATION
  Report Type: Report from Study
  Country: KR (occurrence: KR)
  Receive Date: 20221213
  Receipt Date: 20221213
  Transmission Date: 20230113
  Serious: Yes (Other)
  Sender: FDA-Public Use
  Company Number: KR-ABBVIE-4232744

PATIENT

DRUGS (4)
  1. VENCLEXTA [Suspect]
     Active Substance: VENETOCLAX
     Indication: Acute myeloid leukaemia
     Route: 048
     Dates: start: 20221128
  2. VENCLEXTA [Suspect]
     Active Substance: VENETOCLAX
     Indication: Acute myeloid leukaemia
     Dosage: THERAPY STOP DATE: 2022
     Route: 048
     Dates: start: 2022
  3. Deci [Concomitant]
     Indication: Acute myeloid leukaemia
     Dates: start: 2022
  4. Deci [Concomitant]
     Indication: Acute myeloid leukaemia
     Dates: start: 20221128, end: 20221202

REACTIONS (2)
  - Neoplasm malignant [Unknown]
  - White blood cell count abnormal [Unknown]

NARRATIVE: CASE EVENT DATE: 20220101
